FAERS Safety Report 25499926 (Version 1)
Quarter: 2025Q2

REPORT INFORMATION
  Report Type: Spontaneous
  Country: US (occurrence: None)
  Receive Date: 20250630
  Receipt Date: 20250630
  Transmission Date: 20250716
  Serious: Yes (Other)
  Sender: FDA-CTU
  Company Number: None

PATIENT
  Age: 52 Year
  Sex: Female

DRUGS (1)
  1. ZEPBOUND [Suspect]
     Active Substance: TIRZEPATIDE
     Indication: Obesity
     Dosage: 7.5 MG WEEKLY SUBCUTANEOUS
     Route: 058
     Dates: start: 20250324, end: 20250613

REACTIONS (1)
  - Allodynia [None]

NARRATIVE: CASE EVENT DATE: 20250613
